FAERS Safety Report 6230861-5 (Version None)
Quarter: 2009Q2

REPORT INFORMATION
  Report Type: 
  Country: None (occurrence: None)
  Receive Date: 20090616
  Receipt Date: 20090608
  Transmission Date: 20091009
  Serious: Yes (Other)
  Sender: FDA-Public Use
  Company Number: HR-JNJFOC-20090602990

PATIENT
  Age: 26 Year
  Sex: Female

DRUGS (2)
  1. RISPOLEPT CONSTA [Suspect]
     Indication: SCHIZOPHRENIA
     Route: 065
  2. DEPROZEL [Concomitant]
     Route: 065

REACTIONS (1)
  - ANURIA [None]
